FAERS Safety Report 4575806-9 (Version None)
Quarter: 2005Q1

REPORT INFORMATION
  Report Type: 
  Country: None (occurrence: None)
  Receive Date: 20050209
  Receipt Date: 20041220
  Transmission Date: 20050727
  Serious: Yes (Other)
  Sender: FDA-Public Use
  Company Number: FI-GLAXOSMITHKLINE-B0363004A

PATIENT
  Age: 21 Year
  Sex: Female

DRUGS (8)
  1. LAMICTAL [Suspect]
     Indication: DEPRESSION
     Dosage: 50MG TWICE PER DAY
     Route: 048
  2. TENOX [Concomitant]
  3. BURANA [Concomitant]
  4. ARDINEX [Concomitant]
  5. LORAZEPAM [Concomitant]
     Dates: end: 20041029
  6. REMERON [Concomitant]
     Dosage: 30MG PER DAY
  7. ZYPREXA [Concomitant]
     Dosage: 10MG THREE TIMES PER DAY
     Route: 048
  8. FOLVITE [Concomitant]
     Dosage: 1MG PER DAY

REACTIONS (1)
  - ABORTION SPONTANEOUS [None]
